FAERS Safety Report 17984564 (Version 2)
Quarter: 2020Q4

REPORT INFORMATION
  Report Type: Report from Study
  Country: US (occurrence: US)
  Receive Date: 20200706
  Receipt Date: 20201224
  Transmission Date: 20210113
  Serious: Yes (Disabling)
  Sender: FDA-Public Use
  Company Number: US-SA-2020SA168107

PATIENT

DRUGS (10)
  1. LEVOTHYROXINE SODIUM. [Concomitant]
     Active Substance: LEVOTHYROXINE SODIUM
  2. PRIMIDONE. [Concomitant]
     Active Substance: PRIMIDONE
  3. TERIFLUNOMIDE. [Suspect]
     Active Substance: TERIFLUNOMIDE
     Dosage: 14 MG, QD
     Route: 048
     Dates: start: 20200606
  4. METFORMIN HCL [Concomitant]
     Active Substance: METFORMIN HYDROCHLORIDE
  5. TRAZODONE HYDROCHLORIDE. [Concomitant]
     Active Substance: TRAZODONE HYDROCHLORIDE
  6. TERIFLUNOMIDE. [Suspect]
     Active Substance: TERIFLUNOMIDE
     Indication: MULTIPLE SCLEROSIS
     Dosage: 1 DF
     Route: 048
  7. DIAZEPAM. [Concomitant]
     Active Substance: DIAZEPAM
  8. ROSUVASTATIN CALCIUM. [Concomitant]
     Active Substance: ROSUVASTATIN CALCIUM
  9. AMITRIPTYLINE HCL [Concomitant]
     Active Substance: AMITRIPTYLINE
  10. CYCLOBENZAPRINE. [Concomitant]
     Active Substance: CYCLOBENZAPRINE

REACTIONS (6)
  - Pain [Not Recovered/Not Resolved]
  - Muscle spasms [Not Recovered/Not Resolved]
  - Product dose omission issue [Unknown]
  - Throat clearing [Not Recovered/Not Resolved]
  - Mobility decreased [Not Recovered/Not Resolved]
  - Dysgraphia [Not Recovered/Not Resolved]

NARRATIVE: CASE EVENT DATE: 20200603
